FAERS Safety Report 9791213 (Version 2)
Quarter: 2013Q4

REPORT INFORMATION
  Report Type: Report from Study
  Country: US (occurrence: US)
  Receive Date: 20131231
  Receipt Date: 20131231
  Transmission Date: 20140711
  Serious: Yes (Other)
  Sender: FDA-Public Use
  Company Number: US-ROCHE-1314563

PATIENT
  Age: 60 Year
  Sex: Female

DRUGS (10)
  1. XELODA [Suspect]
     Indication: COLON CANCER
     Dosage: 7 DAYS ON, 7DAYS OFF
     Route: 048
  2. XELODA [Suspect]
     Dosage: 2000MG PM AND 2500MG AM
     Route: 048
     Dates: start: 20130907, end: 20131119
  3. PRILOSEC [Concomitant]
     Indication: GASTROOESOPHAGEAL REFLUX DISEASE
     Route: 048
  4. ATIVAN [Concomitant]
     Indication: ANXIETY
     Route: 048
  5. AMBIEN [Concomitant]
     Indication: INSOMNIA
     Dosage: AT BEDTIME
     Route: 048
  6. NEURONTIN (UNITED STATES) [Concomitant]
     Indication: HYPOAESTHESIA
     Route: 048
  7. NORCO [Concomitant]
     Indication: PAIN
     Dosage: 4-6 HOURS WHEN REQUIRED
     Route: 048
  8. AVASTIN [Concomitant]
     Route: 065
     Dates: start: 20131127
  9. 5-FLUOROURACIL [Concomitant]
     Route: 065
     Dates: start: 20131127
  10. CAMPTOSAR [Concomitant]
     Route: 065
     Dates: start: 20131127

REACTIONS (2)
  - Drug ineffective [Unknown]
  - Disease progression [Not Recovered/Not Resolved]
